FAERS Safety Report 20559767 (Version 4)
Quarter: 2022Q2

REPORT INFORMATION
  Report Type: Report from Study
  Country: DE (occurrence: DE)
  Receive Date: 20220307
  Receipt Date: 20220524
  Transmission Date: 20220720
  Serious: Yes (Hospitalization, Other)
  Sender: FDA-Public Use
  Company Number: DE-NOVARTISPH-NVSC2022DE052352

PATIENT
  Sex: Female
  Weight: 83 kg

DRUGS (10)
  1. MAYZENT [Suspect]
     Active Substance: SIPONIMOD
     Indication: Secondary progressive multiple sclerosis
     Dosage: 2 MG, QD
     Route: 048
     Dates: start: 20200730, end: 20211014
  2. LEVOTHYROXINE [Concomitant]
     Active Substance: LEVOTHYROXINE
     Indication: Thyroidectomy
     Dosage: 125 MG, QD
     Route: 065
     Dates: start: 200007
  3. AMLODIPINE [Concomitant]
     Active Substance: AMLODIPINE BESYLATE
     Indication: Hypertension
     Dosage: 5 MG, QD
     Route: 065
  4. KALINOR [Concomitant]
     Indication: Hypokalaemia
     Dosage: 600 MG, QD
     Route: 065
  5. METAMIZOLE [Concomitant]
     Active Substance: METAMIZOLE
     Indication: Pain
     Dosage: 500 MG, QD
     Route: 065
  6. TRIMIPRAMINE MALEATE [Concomitant]
     Active Substance: TRIMIPRAMINE MALEATE
     Indication: Depression
     Dosage: 40 MG, QD
     Route: 065
     Dates: start: 20180313
  7. CYTARABINE [Concomitant]
     Active Substance: CYTARABINE
     Indication: Acute myeloid leukaemia
     Dosage: 200 MG
     Route: 065
     Dates: start: 20211216
  8. DAUNORUBICIN [Concomitant]
     Active Substance: DAUNORUBICIN
     Indication: Acute myeloid leukaemia
     Dosage: 60 MG
     Route: 065
     Dates: start: 20211216
  9. MIDOSTAURIN [Concomitant]
     Active Substance: MIDOSTAURIN
     Indication: Acute myeloid leukaemia
     Dosage: 50 MG
     Route: 065
     Dates: start: 20211216
  10. AMOXICILLIN [Concomitant]
     Active Substance: AMOXICILLIN
     Indication: Acute myeloid leukaemia
     Dosage: UNK
     Route: 065
     Dates: start: 20211209

REACTIONS (3)
  - Upper limb fracture [Recovering/Resolving]
  - Joint dislocation [Recovering/Resolving]
  - Gait disturbance [Unknown]

NARRATIVE: CASE EVENT DATE: 20210924
